FAERS Safety Report 5420986-6 (Version None)
Quarter: 2007Q3

REPORT INFORMATION
  Report Type: 
  Country: None (occurrence: None)
  Receive Date: 20070816
  Receipt Date: 20070809
  Transmission Date: 20080115
  Serious: Yes (Disabling, Other)
  Sender: FDA-Public Use
  Company Number: 07082215

PATIENT
  Age: 55 Year
  Sex: Male

DRUGS (1)
  1. CIPROFLOXACIN [Suspect]
     Indication: OSTEOMYELITIS
     Dosage: 1500MG,QD,OTHER

REACTIONS (2)
  - OPTIC NEUROPATHY [None]
  - VISION BLURRED [None]
